FAERS Safety Report 7655186-2 (Version None)
Quarter: 2011Q3

REPORT INFORMATION
  Report Type: 
  Country: None (occurrence: None)
  Receive Date: 20110804
  Receipt Date: 20110801
  Transmission Date: 20111222
  Serious: No
  Sender: FDA-Public Use
  Company Number: US-PFIZER INC-2011175604

PATIENT
  Sex: Male
  Weight: 65.76 kg

DRUGS (1)
  1. PREMARIN [Suspect]
     Dosage: 2.5 MG, 2X/DAY
     Route: 048
     Dates: start: 20100901, end: 20110801

REACTIONS (5)
  - DRUG ADMINISTRATION ERROR [None]
  - WEIGHT INCREASED [None]
  - BREAST ENLARGEMENT [None]
  - NIPPLE SWELLING [None]
  - BREAST TENDERNESS [None]
